FAERS Safety Report 7798199-2 (Version None)
Quarter: 2011Q4

REPORT INFORMATION
  Report Type: 
  Country: None (occurrence: None)
  Receive Date: 20111005
  Receipt Date: 20110922
  Transmission Date: 20120403
  Serious: Yes (Hospitalization, Other)
  Sender: FDA-Public Use
  Company Number: US-ELI_LILLY_AND_COMPANY-US201107002059

PATIENT
  Sex: Female

DRUGS (3)
  1. FORTEO [Suspect]
     Dosage: 20 UG, QD
  2. FORTEO [Suspect]
     Dosage: 20 UG, QD
  3. FORTEO [Suspect]
     Indication: OSTEOPOROSIS
     Dosage: 20 UG, QD
     Route: 065
     Dates: start: 20110501

REACTIONS (8)
  - FEELING ABNORMAL [None]
  - INJECTION SITE PAIN [None]
  - KNEE ARTHROPLASTY [None]
  - RESPIRATORY DISORDER [None]
  - INJECTION SITE HAEMORRHAGE [None]
  - FIBROMYALGIA [None]
  - NASOPHARYNGITIS [None]
  - LARYNGITIS [None]
